FAERS Safety Report 5406472-8 (Version None)
Quarter: 2007Q3

REPORT INFORMATION
  Report Type: 
  Country: None (occurrence: None)
  Receive Date: 20070806
  Receipt Date: 20070726
  Transmission Date: 20080115
  Serious: Yes (Other)
  Sender: FDA-Public Use
  Company Number: US-ELI_LILLY_AND_COMPANY-US200707006300

PATIENT
  Age: 58 Year
  Sex: Female

DRUGS (3)
  1. EVISTA [Suspect]
     Dosage: 60 MG, UNK
     Route: 048
     Dates: start: 19970101
  2. EVISTA [Suspect]
     Dosage: 60 MG, EACH EVENING
     Route: 048
     Dates: start: 20070725
  3. EVISTA [Suspect]
     Dosage: 60 MG, UNK
     Route: 048

REACTIONS (3)
  - MIDDLE INSOMNIA [None]
  - MUSCLE SPASMS [None]
  - PRECANCEROUS CELLS PRESENT [None]
